FAERS Safety Report 4602721-4 (Version None)
Quarter: 2005Q1

REPORT INFORMATION
  Report Type: 
  Country: None (occurrence: None)
  Receive Date: 20050307
  Receipt Date: 20050228
  Transmission Date: 20050727
  Serious: Yes (Hospitalization, Other)
  Sender: FDA-Public Use
  Company Number: 2005037830

PATIENT
  Age: 84 Year
  Sex: Female
  Weight: 58.0604 kg

DRUGS (7)
  1. LIPITOR [Suspect]
     Indication: BLOOD CHOLESTEROL INCREASED
     Dosage: 40 MG (40 MG, 1 IN 1 D), ORAL
     Route: 048
  2. IRBESARTAN [Concomitant]
  3. VITAMINS (VITAMINS) [Concomitant]
  4. LABETALOL HCL [Concomitant]
  5. AMLODIPINE BESYLATE [Concomitant]
  6. FUROSEMIDE [Concomitant]
  7. ACETYLSALICYLIC ACID (ACETYLALICYLIC ACID) [Concomitant]

REACTIONS (2)
  - CARDIAC PACEMAKER INSERTION [None]
  - ROAD TRAFFIC ACCIDENT [None]
